FAERS Safety Report 15691663 (Version 1)
Quarter: 2018Q4

REPORT INFORMATION
  Report Type: Spontaneous
  Country: US (occurrence: US)
  Receive Date: 20181205
  Receipt Date: 20181205
  Transmission Date: 20190205
  Serious: Yes (Life-Threatening)
  Sender: FDA-Public Use
  Company Number: None

PATIENT
  Age: 67 Year
  Sex: Male
  Weight: 82.8 kg

DRUGS (2)
  1. AMLODIPINE/VALSARTAN [Suspect]
     Active Substance: AMLODIPINE\VALSARTAN
     Indication: HYPERTENSION
     Route: 048
     Dates: start: 20170301, end: 20181205
  2. LEVOTHYROXINE 75MG [Concomitant]
     Active Substance: LEVOTHYROXINE
     Dates: start: 20180710, end: 20181205

REACTIONS (4)
  - Suspected product contamination [None]
  - Prostate cancer [None]
  - Carcinogenicity [None]
  - Recalled product [None]

NARRATIVE: CASE EVENT DATE: 20180924
